FAERS Safety Report 18170703 (Version 2)
Quarter: 2020Q3

REPORT INFORMATION
  Report Type: Report from Study
  Country: FI (occurrence: FI)
  Receive Date: 20200819
  Receipt Date: 20200821
  Transmission Date: 20201103
  Serious: Yes (Hospitalization)
  Sender: FDA-Public Use
  Company Number: FI-MYLANLABS-2020M1070772

PATIENT
  Age: 71 Year
  Sex: Female

DRUGS (15)
  1. LEPONEX [Suspect]
     Active Substance: CLOZAPINE
     Indication: SCHIZOPHRENIA
     Dosage: UNK
  2. LEPONEX [Suspect]
     Active Substance: CLOZAPINE
     Dosage: 37.5 MG, ONCE PER DAY
     Dates: start: 20200814
  3. PANTOPRAZOL                        /01263201/ [Concomitant]
     Active Substance: PANTOPRAZOLE
     Dosage: 40 MG ONCE PER DAY
  4. AMITRIPTYLINE [Concomitant]
     Active Substance: AMITRIPTYLINE
     Dosage: 10 MG ONCE PER DAY
     Dates: start: 2020
  5. COLONSOFT [Concomitant]
     Dosage: UNK UNK, QD
  6. LORAZEPAM. [Concomitant]
     Active Substance: LORAZEPAM
     Dosage: 1 MG ONCE PER DAY
  7. LEPONEX [Suspect]
     Active Substance: CLOZAPINE
     Dosage: 12.5 MG ONCE PER DAY
     Dates: start: 20200806
  8. ACETYLSALICYLIC ACID [Concomitant]
     Active Substance: ASPIRIN
     Dosage: 50 MG ONCE PER DAY
  9. ESCITALOPRAM [Concomitant]
     Active Substance: ESCITALOPRAM OXALATE
     Dosage: 20 MG ONCE PER DAY
  10. BEROCCA                            /00302401/ [Concomitant]
     Dosage: ONE DOSE ONCE PER DAY
  11. LEPONEX [Suspect]
     Active Substance: CLOZAPINE
     Dosage: UNK
     Dates: start: 1990, end: 20200514
  12. CLOZAPINE. [Suspect]
     Active Substance: CLOZAPINE
     Indication: SCHIZOPHRENIA
     Dosage: UNK
  13. ENALAPRIL [Concomitant]
     Active Substance: ENALAPRIL
     Dosage: 5 MG ONCE PER DAY
  14. HALOPERIDOL. [Concomitant]
     Active Substance: HALOPERIDOL
     Dosage: 1 MG ONE DOSE TWICE PER DAY
     Dates: start: 2020
  15. CALCICHEW?D3 [Concomitant]
     Active Substance: CALCIUM\CHOLECALCIFEROL
     Dosage: ONE DOSE ONCE PER DAY

REACTIONS (5)
  - Diet failure [Not Recovered/Not Resolved]
  - White blood cell count decreased [Recovered/Resolved]
  - Mental disorder [Not Recovered/Not Resolved]
  - Neutrophil count decreased [Recovered/Resolved]
  - Haemoglobin decreased [Unknown]

NARRATIVE: CASE EVENT DATE: 202005
